FAERS Safety Report 5928946-3 (Version None)
Quarter: 2008Q4

REPORT INFORMATION
  Report Type: 
  Country: None (occurrence: None)
  Receive Date: 20081024
  Receipt Date: 20081013
  Transmission Date: 20090506
  Serious: Yes (Other)
  Sender: FDA-Public Use
  Company Number: DE-NOVOPROD-280263

PATIENT
  Sex: Female
  Weight: 50 kg

DRUGS (2)
  1. LEVEMIR [Suspect]
     Indication: TYPE 1 DIABETES MELLITUS
     Dosage: 44 U, QD
     Route: 058
  2. HUMALOG [Concomitant]
     Dosage: UNK, QD
     Route: 058

REACTIONS (4)
  - BACK PAIN [None]
  - BONE PAIN [None]
  - PRURITUS [None]
  - SLEEP DISORDER [None]
